FAERS Safety Report 4309891-6 (Version None)
Quarter: 2004Q1

REPORT INFORMATION
  Report Type: 
  Country: None (occurrence: None)
  Receive Date: 20040303
  Receipt Date: 20040115
  Transmission Date: 20041129
  Serious: No
  Sender: FDA-Public Use
  Company Number: US-BRISTOL-MYERS SQUIBB COMPANY-12479747

PATIENT
  Age: 32 Year
  Sex: Male

DRUGS (4)
  1. ABILIFY [Suspect]
     Indication: BIPOLAR DISORDER
     Route: 048
     Dates: start: 20031120, end: 20031125
  2. LEXAPRO [Concomitant]
  3. ESKALITH [Concomitant]
  4. LORAZEPAM [Concomitant]

REACTIONS (3)
  - ABASIA [None]
  - ASTHENIA [None]
  - BLOOD POTASSIUM INCREASED [None]
